FAERS Safety Report 4487555-6 (Version None)
Quarter: 2004Q4

REPORT INFORMATION
  Report Type: 
  Country: None (occurrence: None)
  Receive Date: 20041028
  Receipt Date: 20041015
  Transmission Date: 20050328
  Serious: Yes (Other)
  Sender: FDA-Public Use
  Company Number: FR-JNJFOC-20041005225

PATIENT
  Age: 56 Year
  Sex: Male
  Weight: 65 kg

DRUGS (15)
  1. INFLIXIMAB [Suspect]
     Route: 042
  2. INFLIXIMAB [Suspect]
     Route: 042
  3. INFLIXIMAB [Suspect]
     Route: 042
  4. INFLIXIMAB [Suspect]
     Route: 042
  5. INFLIXIMAB [Suspect]
     Route: 042
  6. INFLIXIMAB [Suspect]
     Route: 042
  7. INFLIXIMAB [Suspect]
     Route: 042
  8. INFLIXIMAB [Suspect]
     Indication: ANKYLOSING SPONDYLITIS
     Route: 042
  9. FELDENE [Concomitant]
     Route: 049
  10. DIANTALVIC [Concomitant]
     Route: 049
  11. DIANTALVIC [Concomitant]
     Dosage: 6 TABLETS DAILY
     Route: 049
  12. COLCHICINE [Concomitant]
     Route: 049
  13. COZAAR [Concomitant]
     Route: 049
  14. FLUDEX [Concomitant]
     Route: 049
  15. NEXIUM [Concomitant]
     Route: 049

REACTIONS (2)
  - PRURIGO [None]
  - RASH PRURITIC [None]
